FAERS Safety Report 14226655 (Version 6)
Quarter: 2018Q4

REPORT INFORMATION
  Report Type: Spontaneous
  Country: IT (occurrence: IT)
  Receive Date: 20171127
  Receipt Date: 20181219
  Transmission Date: 20190204
  Serious: Yes (Other)
  Sender: FDA-Public Use
  Company Number: IT-PFIZER INC-2017500478

PATIENT
  Age: 83 Year
  Sex: Female

DRUGS (6)
  1. DEXKETOPROFEN TROMETAMOL [Interacting]
     Active Substance: DEXKETOPROFEN TROMETAMOL
     Dosage: UNK
     Route: 065
  2. LENIZAK [Interacting]
     Active Substance: DEXKETOPROFEN\TRAMADOL
     Indication: ARTHRALGIA
     Dosage: 1 DF, AS NEEDED
     Route: 048
  3. TRAMADOL HCL [Interacting]
     Active Substance: TRAMADOL HYDROCHLORIDE
     Indication: ARTHRALGIA
     Dosage: 1 DF, UNK
     Route: 048
  4. LENIZAK [Interacting]
     Active Substance: DEXKETOPROFEN\TRAMADOL
     Dosage: 1 DF, AS NEEDED
     Route: 048
  5. LENIZAK [Interacting]
     Active Substance: DEXKETOPROFEN\TRAMADOL
     Dosage: 1 DF, AS NEEDED
     Route: 048
  6. RAMIPRIL. [Suspect]
     Active Substance: RAMIPRIL
     Indication: HYPERTENSION
     Dosage: 5 MG, DAILY
     Route: 048

REACTIONS (6)
  - Vomiting [Recovering/Resolving]
  - Nausea [Recovering/Resolving]
  - Hypertensive crisis [Recovering/Resolving]
  - Vertigo [Recovering/Resolving]
  - Drug interaction [Recovering/Resolving]
  - Malaise [Recovering/Resolving]

NARRATIVE: CASE EVENT DATE: 20171112
